FAERS Safety Report 18095463 (Version 2)
Quarter: 2020Q3

REPORT INFORMATION
  Report Type: Spontaneous
  Country: US (occurrence: US)
  Receive Date: 20200730
  Receipt Date: 20200813
  Transmission Date: 20201103
  Serious: No
  Sender: FDA-Public Use
  Company Number: US-ACTELION-A-US2020-207497

PATIENT
  Age: 76 Year
  Sex: Female
  Weight: 91.61 kg

DRUGS (6)
  1. UPTRAVI [Suspect]
     Active Substance: SELEXIPAG
     Indication: PULMONARY ARTERIAL HYPERTENSION
     Dosage: 800 MCG, BID
     Route: 048
  2. UPTRAVI [Suspect]
     Active Substance: SELEXIPAG
     Dosage: 1000 MCG, BID
     Route: 048
  3. REMODULIN [Concomitant]
     Active Substance: TREPROSTINIL
  4. TADALAFIL. [Concomitant]
     Active Substance: TADALAFIL
  5. UPTRAVI [Suspect]
     Active Substance: SELEXIPAG
     Dosage: 1200 MCG, BID
     Route: 048
  6. AMLODIPINE [Concomitant]
     Active Substance: AMLODIPINE BESYLATE

REACTIONS (3)
  - Back pain [Unknown]
  - Headache [Unknown]
  - Neck pain [Unknown]

NARRATIVE: CASE EVENT DATE: 202007
